FAERS Safety Report 19778917 (Version 3)
Quarter: 2021Q4

REPORT INFORMATION
  Report Type: Spontaneous
  Country: JP (occurrence: JP)
  Receive Date: 20210902
  Receipt Date: 20211022
  Transmission Date: 20220303
  Serious: Yes (Hospitalization, Other)
  Sender: FDA-Public Use
  Company Number: JP-AMGEN-JPNSP2021134373

PATIENT
  Age: 81 Year
  Sex: Female

DRUGS (6)
  1. EVENITY [Suspect]
     Active Substance: ROMOSOZUMAB-AQQG
     Indication: Osteoporosis
     Dosage: 210 MILLIGRAM
     Route: 058
     Dates: start: 20210807, end: 20210807
  2. NORVASC [Concomitant]
     Active Substance: AMLODIPINE BESYLATE
     Dosage: 2.5, UNK, QD
     Dates: start: 201310
  3. IPRAGLIFLOZIN L-PROLINE\SITAGLIPTIN PHOSPHATE [Concomitant]
     Active Substance: IPRAGLIFLOZIN L-PROLINE\SITAGLIPTIN PHOSPHATE
     Dosage: UNK UNK, QD
     Dates: start: 201905
  4. PITAVASTATIN CALCIUM [Concomitant]
     Active Substance: PITAVASTATIN CALCIUM
     Dosage: 2 MILLIGRAM, QD
     Dates: start: 201403
  5. LYRICA [Concomitant]
     Active Substance: PREGABALIN
     Dosage: 75 MILLIGRAM, QD
     Dates: start: 201501
  6. HALCION [Concomitant]
     Active Substance: TRIAZOLAM
     Dosage: 0.125 MILLIGRAM, QD
     Dates: start: 201206

REACTIONS (1)
  - Haematemesis [Recovered/Resolved]

NARRATIVE: CASE EVENT DATE: 20210823
